FAERS Safety Report 5377128-5 (Version None)
Quarter: 2007Q3

REPORT INFORMATION
  Report Type: 
  Country: None (occurrence: None)
  Receive Date: 20070703
  Receipt Date: 20070626
  Transmission Date: 20080115
  Serious: Yes (Hospitalization)
  Sender: FDA-Public Use
  Company Number: US-AVENTIS-200713447US

PATIENT
  Sex: Female
  Weight: 127.3 kg

DRUGS (4)
  1. LANTUS [Suspect]
     Dates: start: 20050101, end: 20070510
  2. LANTUS [Suspect]
     Dates: start: 20070510
  3. LANTUS [Suspect]
     Dosage: DOSE: 15 TO 10 UNITS
  4. HUMALOG [Suspect]
     Dosage: DOSE: SLIDING SCALE 5-10 UNITS 3 TO 2 TIMES A DAY

REACTIONS (8)
  - BLOOD GLUCOSE INCREASED [None]
  - DIABETIC KETOACIDOSIS [None]
  - DRUG INEFFECTIVE [None]
  - DYSPNOEA [None]
  - FALL [None]
  - HYPERGLYCAEMIA [None]
  - MALAISE [None]
  - SYNCOPE [None]
